FAERS Safety Report 8959510 (Version 1)
Quarter: 2012Q4

REPORT INFORMATION
  Report Type: 
  Country: US (occurrence: US)
  Receive Date: 20121212
  Receipt Date: 20121212
  Transmission Date: 20130627
  Serious: No
  Sender: FDA-Public Use
  Company Number: US-B.I. PHARMACEUTICALS,INC./RIDGEFIELD-2012-BI-02455BP

PATIENT
  Age: 82 Year
  Sex: Male

DRUGS (15)
  1. PRADAXA [Suspect]
     Indication: ATRIAL FIBRILLATION
     Dosage: 300 mg
     Route: 048
     Dates: start: 20121017
  2. FOSAMAX [Concomitant]
     Indication: OSTEOPOROSIS
     Route: 048
     Dates: start: 2007
  3. PRILOSEC [Concomitant]
     Indication: GASTROOESOPHAGEAL REFLUX DISEASE
     Dosage: 20 mg
     Route: 048
     Dates: start: 2007
  4. STARLIX [Concomitant]
     Indication: DIABETES MELLITUS
     Dosage: 360 mg
     Route: 048
     Dates: start: 2002
  5. METFORMIN [Concomitant]
     Indication: DIABETES MELLITUS
     Route: 048
     Dates: start: 2002
  6. METFORMIN [Concomitant]
     Route: 048
     Dates: start: 2002
  7. POTASSIUM CHLORIDE [Concomitant]
     Indication: MINERAL SUPPLEMENTATION
     Dosage: 20 mEq
     Route: 048
     Dates: start: 2007
  8. LASIX [Concomitant]
     Indication: HYPERTENSION
     Dosage: 80 mg
     Route: 048
     Dates: start: 2007
  9. METOPROLOL [Concomitant]
     Indication: ATRIAL FIBRILLATION
     Dosage: 100 mg
     Route: 048
  10. CARDIZEM [Concomitant]
     Indication: HEART RATE INCREASED
     Dosage: 240 mg
     Route: 048
  11. PRAVASTATIN [Concomitant]
     Indication: BLOOD CHOLESTEROL INCREASED
     Dosage: 80 mg
     Route: 048
  12. TERAZOSIN [Concomitant]
     Indication: HYPERTENSION
     Dosage: 2 mg
     Route: 048
  13. MISCELLANEOUS VITAMINS [Concomitant]
     Route: 048
  14. CALCIUM [Concomitant]
     Route: 048
  15. VITAMIN B12 [Concomitant]
     Route: 048

REACTIONS (2)
  - Headache [Not Recovered/Not Resolved]
  - Headache [Not Recovered/Not Resolved]
